FAERS Safety Report 4335094-5 (Version None)
Quarter: 2004Q2

REPORT INFORMATION
  Report Type: 
  Country: None (occurrence: None)
  Receive Date: 20040408
  Receipt Date: 20040329
  Transmission Date: 20050107
  Serious: Yes (Life-Threatening, Hospitalization, Disabling)
  Sender: FDA-Public Use
  Company Number: DE-BRISTOL-MYERS SQUIBB COMPANY-12543948

PATIENT
  Age: 65 Year
  Sex: Female
  Weight: 67 kg

DRUGS (1)
  1. KARVEZIDE TABS [Suspect]
     Indication: HYPERTENSION
     Dosage: 0.5 TABLET QD FROM 5/99;STOPPED IN 2/03; RESTART 12/1/03 + STOPPED AGAIN ON 1/15/04.
     Route: 048
     Dates: start: 19990501, end: 20040115

REACTIONS (2)
  - HEPATIC CIRRHOSIS [None]
  - HEPATITIS TOXIC [None]
